FAERS Safety Report 16023433 (Version 1)
Quarter: 2019Q1

REPORT INFORMATION
  Report Type: Spontaneous
  Country: JP (occurrence: JP)
  Receive Date: 20190301
  Receipt Date: 20190301
  Transmission Date: 20190418
  Serious: Yes (Hospitalization)
  Sender: FDA-Public Use
  Company Number: JP-MYLANLABS-2019M1014793

PATIENT
  Age: 64 Year
  Sex: Male
  Weight: 76 kg

DRUGS (8)
  1. ACETYLSALICYLIC ACID [Suspect]
     Active Substance: ASPIRIN
     Indication: ARTERIAL THROMBOSIS
     Dosage: 100 MILLIGRAM
     Route: 048
     Dates: start: 20180703
  2. MAGNESIUM OXIDE. [Suspect]
     Active Substance: MAGNESIUM OXIDE
     Indication: CONSTIPATION
     Dosage: 660 MILLIGRAM
     Route: 048
     Dates: start: 20181204, end: 20190210
  3. AZILVA [Concomitant]
     Active Substance: AZILSARTAN KAMEDOXOMIL
     Indication: HYPERTENSION
     Dosage: 20 MILLIGRAM
     Route: 048
     Dates: start: 20181107, end: 20190210
  4. AVELUMAB [Concomitant]
     Active Substance: AVELUMAB
     Indication: RENAL CELL CARCINOMA
     Dosage: 707 MILLIGRAM
     Route: 042
     Dates: start: 20170302, end: 20170316
  5. INLYTA [Suspect]
     Active Substance: AXITINIB
     Indication: RENAL CELL CARCINOMA
     Dosage: 10 MILLIGRAM, BID
     Route: 048
     Dates: start: 20170302, end: 20170726
  6. AMLODIPINE [Concomitant]
     Active Substance: AMLODIPINE BESYLATE
     Indication: HYPERTENSION
     Dosage: 5 MILLIGRAM
     Route: 048
     Dates: start: 20180407, end: 20190210
  7. INLYTA [Suspect]
     Active Substance: AXITINIB
     Dosage: 6 MILLIGRAM, BID
     Route: 048
     Dates: start: 20170727, end: 20190209
  8. LOQOA [Concomitant]
     Indication: INTERVERTEBRAL DISC PROTRUSION
     Dosage: 40 MILLIGRAM
     Route: 061
     Dates: start: 20180405

REACTIONS (2)
  - Arthralgia [Unknown]
  - Diarrhoea [Recovered/Resolved]

NARRATIVE: CASE EVENT DATE: 20190209
